FAERS Safety Report 11200578 (Version 4)
Quarter: 2015Q3

REPORT INFORMATION
  Report Type: Report from Study
  Country: CA (occurrence: CA)
  Receive Date: 20150618
  Receipt Date: 20150713
  Transmission Date: 20151125
  Serious: Yes (Life-Threatening, Hospitalization, Other)
  Sender: FDA-Public Use
  Company Number: CA-GILEAD-2015-0153319

PATIENT
  Age: 60 Year
  Sex: Male

DRUGS (6)
  1. CEPHALEXIN                         /00145501/ [Concomitant]
     Active Substance: CEPHALEXIN
  2. TYLENOL WITH CODEINE [Concomitant]
     Active Substance: ACETAMINOPHEN\CODEINE PHOSPHATE
  3. LASIX [Concomitant]
     Active Substance: FUROSEMIDE
  4. ACYCLOVIR                          /00587301/ [Concomitant]
     Active Substance: ACYCLOVIR
  5. IDELALISIB [Suspect]
     Active Substance: IDELALISIB
     Indication: NON-HODGKIN^S LYMPHOMA UNSPECIFIED HISTOLOGY INDOLENT
     Dosage: 150 MG, BID
     Route: 048
     Dates: start: 20150425, end: 20150630
  6. MICONAZOLE. [Concomitant]
     Active Substance: MICONAZOLE NITRATE

REACTIONS (22)
  - Leukopenia [Not Recovered/Not Resolved]
  - Hypersomnia [Unknown]
  - Gait disturbance [Unknown]
  - Nausea [Recovered/Resolved]
  - Chromaturia [Unknown]
  - Neuropathy peripheral [Unknown]
  - Malaise [Unknown]
  - Dysphonia [Unknown]
  - Oedema peripheral [Recovering/Resolving]
  - Oedema [Not Recovered/Not Resolved]
  - Sepsis [Unknown]
  - Haemoglobin decreased [Not Recovered/Not Resolved]
  - Fatigue [Unknown]
  - Pyrexia [Recovered/Resolved]
  - Neutropenia [Not Recovered/Not Resolved]
  - Dysarthria [Unknown]
  - Pain [Recovering/Resolving]
  - Thrombocytopenia [Not Recovered/Not Resolved]
  - Pyrexia [Recovered/Resolved]
  - Muscular weakness [Unknown]
  - Non-Hodgkin^s lymphoma [Unknown]
  - Vomiting [Recovered/Resolved]

NARRATIVE: CASE EVENT DATE: 2015
